FAERS Safety Report 17501559 (Version 4)
Quarter: 2020Q4

REPORT INFORMATION
  Report Type: Spontaneous
  Country: US (occurrence: US)
  Receive Date: 20200305
  Receipt Date: 20201209
  Transmission Date: 20210113
  Serious: Yes (Other)
  Sender: FDA-Public Use
  Company Number: US-PFIZER INC-2020097720

PATIENT
  Age: 74 Year
  Sex: Female

DRUGS (3)
  1. PREDNISONE. [Concomitant]
     Active Substance: PREDNISONE
     Dosage: UNK
  2. XELJANZ XR [Suspect]
     Active Substance: TOFACITINIB CITRATE
     Indication: RHEUMATOID ARTHRITIS
     Dosage: 11 MG, DAILY
     Route: 048
     Dates: start: 201910
  3. PLAQUENIL [Concomitant]
     Active Substance: HYDROXYCHLOROQUINE SULFATE
     Dosage: UNK, DAILY

REACTIONS (12)
  - Nasopharyngitis [Unknown]
  - Pulmonary fibrosis [Unknown]
  - Dyspepsia [Unknown]
  - Fibromyalgia [Unknown]
  - Abdominal pain upper [Recovering/Resolving]
  - Muscle spasms [Unknown]
  - Nightmare [Unknown]
  - Condition aggravated [Unknown]
  - Post-traumatic stress disorder [Unknown]
  - Fatigue [Unknown]
  - Depressed mood [Unknown]
  - Stress [Unknown]
